FAERS Safety Report 16726461 (Version 4)
Quarter: 2020Q1

REPORT INFORMATION
  Report Type: Report from Study
  Country: US (occurrence: US)
  Receive Date: 20190821
  Receipt Date: 20200224
  Transmission Date: 20200409
  Serious: Yes (Hospitalization)
  Sender: FDA-Public Use
  Company Number: US-ACTELION-A-US2019-189335

PATIENT
  Age: 79 Year
  Sex: Female

DRUGS (2)
  1. ADEMPAS [Concomitant]
     Active Substance: RIOCIGUAT
  2. OPSUMIT [Suspect]
     Active Substance: MACITENTAN
     Indication: PULMONARY ARTERIAL HYPERTENSION
     Dosage: 10 MG, QD
     Route: 048
     Dates: start: 20190227

REACTIONS (16)
  - Anaemia [Unknown]
  - Epistaxis [Recovered/Resolved]
  - Weight increased [Recovered/Resolved]
  - Cholecystitis [Unknown]
  - Liver injury [Recovered/Resolved]
  - Alopecia [Unknown]
  - Weight decreased [Not Recovered/Not Resolved]
  - Dyspnoea exertional [Unknown]
  - Dyspnoea [Recovered/Resolved]
  - Renal failure [Unknown]
  - Fatigue [Unknown]
  - Headache [Unknown]
  - Cholelithiasis [Recovered/Resolved]
  - Peripheral swelling [Recovered/Resolved]
  - Decreased appetite [Unknown]
  - Product dose omission [Not Recovered/Not Resolved]

NARRATIVE: CASE EVENT DATE: 201903
